FAERS Safety Report 7866277-5 (Version None)
Quarter: 2011Q4

REPORT INFORMATION
  Report Type: 
  Country: None (occurrence: None)
  Receive Date: 20111028
  Receipt Date: 20110524
  Transmission Date: 20120403
  Serious: No
  Sender: FDA-Public Use
  Company Number: US-GLAXOSMITHKLINE-A0928945A

PATIENT
  Age: 54 Year
  Sex: Male

DRUGS (6)
  1. FLUTICASONE PROPIONATE [Concomitant]
  2. FLUVOXAMINE MALEATE [Concomitant]
  3. FLOVENT [Suspect]
     Indication: ASTHMA
     Dosage: 2PUFF TWICE PER DAY
     Route: 055
     Dates: start: 20100801
  4. STRATTERA [Concomitant]
  5. ADVAIR DISKUS 100/50 [Suspect]
     Indication: ASTHMA
     Route: 055
     Dates: start: 20080101
  6. ZYRTEC [Concomitant]

REACTIONS (4)
  - THROAT IRRITATION [None]
  - COUGH [None]
  - OROPHARYNGEAL PAIN [None]
  - VIRAL INFECTION [None]
